FAERS Safety Report 24211779 (Version 1)
Quarter: 2024Q3

REPORT INFORMATION
  Report Type: Spontaneous
  Country: JP (occurrence: JP)
  Receive Date: 20240814
  Receipt Date: 20240814
  Transmission Date: 20241016
  Serious: Yes (Hospitalization)
  Sender: LUNDBECK
  Company Number: JP-SA-2024SA234715

PATIENT

DRUGS (7)
  1. SABRIL [Suspect]
     Active Substance: VIGABATRIN
     Indication: Product used for unknown indication
     Dosage: SMALL STARTING DOSE
     Route: 048
     Dates: start: 2024
  2. SABRIL [Suspect]
     Active Substance: VIGABATRIN
     Dosage: 800 MG/DAY
     Route: 048
     Dates: start: 2024
  3. VALPROATE SODIUM [Concomitant]
     Active Substance: VALPROATE SODIUM
     Indication: Product used for unknown indication
  4. LEVOCARNITINE FF [Concomitant]
     Indication: Product used for unknown indication
  5. PROCATEROL HYDROCHLORIDE [Concomitant]
     Active Substance: PROCATEROL HYDROCHLORIDE
     Indication: Product used for unknown indication
  6. CARBOCYSTEINE [Concomitant]
     Active Substance: CARBOCYSTEINE
     Indication: Product used for unknown indication
  7. TRANSAMIN [Concomitant]
     Active Substance: TRANEXAMIC ACID
     Indication: Product used for unknown indication

REACTIONS (2)
  - Respiratory disorder [Unknown]
  - Vomiting [Unknown]
